FAERS Safety Report 8607897 (Version 2)
Quarter: 2012Q4

REPORT INFORMATION
  Report Type: 
  Country: CN (occurrence: CN)
  Receive Date: 20120611
  Receipt Date: 20121126
  Transmission Date: 20130627
  Serious: Yes (Death, Hospitalization)
  Sender: FDA-Public Use
  Company Number: DE-RANBAXY-2012US-57049

PATIENT

DRUGS (8)
  1. PANTOLOC [Suspect]
     Indication: PROPHYLAXIS
     Dosage: 40 mg daily
     Route: 058
  2. PANTOLOC [Suspect]
     Indication: PROPHYLAXIS
     Dosage: 40 mg, bid
     Route: 048
  3. ASPIRIN [Concomitant]
     Indication: ACUTE CORONARY SYNDROME
     Route: 065
  4. CLOPIDOGREL [Concomitant]
     Indication: ACUTE CORONARY SYNDROME
     Route: 065
  5. TIROFIBAN [Concomitant]
     Indication: ACUTE CORONARY SYNDROME
     Dosage: 0.4mcg/kg.min for 30min
     Route: 041
  6. TIROFIBAN [Concomitant]
     Dosage: 0.1mcg/kg.min for 2-3 days
     Route: 041
  7. ENOXAPARIN [Concomitant]
     Indication: ACUTE CORONARY SYNDROME
     Dosage: 40mg. 1 in 12 hours (for 2-3 days)
     Route: 065
  8. ENOXAPARIN [Concomitant]
     Dosage: 1mg/kg,1 in 12 hours ((for 4-5 days)
     Route: 065

REACTIONS (1)
  - Percutaneous coronary intervention [Unknown]
